FAERS Safety Report 4866751-X (Version None)
Quarter: 2005Q4

REPORT INFORMATION
  Report Type: 
  Country: None (occurrence: None)
  Receive Date: 20051221
  Receipt Date: 20051208
  Transmission Date: 20060501
  Serious: Yes (Hospitalization)
  Sender: FDA-Public Use
  Company Number: 2005P1000575

PATIENT
  Age: 74 Year
  Sex: Female
  Weight: 68 kg

DRUGS (6)
  1. RETEPLASE (RETEPLASE) [Suspect]
     Indication: ACUTE MYOCARDIAL INFARCTION
     Dosage: UNKNOWN; IV
     Route: 042
     Dates: start: 20050929, end: 20050929
  2. ABCIXIMAB (ABCIXIMAB) [Suspect]
     Indication: ACUTE MYOCARDIAL INFARCTION
     Dosage: UNKNOWN; IV
     Route: 042
     Dates: start: 20050929
  3. ASPIRIN [Concomitant]
  4. CLOPIDOGREL [Concomitant]
  5. SIMVASTATIN [Concomitant]
  6. INSULIN [Concomitant]

REACTIONS (3)
  - GASTROINTESTINAL HAEMORRHAGE [None]
  - HAEMOGLOBIN DECREASED [None]
  - TROPONIN INCREASED [None]
